FAERS Safety Report 12501308 (Version 2)
Quarter: 2016Q3

REPORT INFORMATION
  Report Type: Spontaneous
  Country: GB (occurrence: GB)
  Receive Date: 20160627
  Receipt Date: 20160725
  Transmission Date: 20161109
  Serious: Yes (Other)
  Sender: FDA-Public Use
  Company Number: GB-CONCORDIA PHARMACEUTICALS INC.-GSH201606-003191

PATIENT
  Age: 36 Year
  Sex: Male
  Weight: 135 kg

DRUGS (1)
  1. ATROPINE SULPHATE [Suspect]
     Active Substance: ATROPINE SULFATE

REACTIONS (1)
  - Heart rate increased [Recovered/Resolved]
